FAERS Safety Report 9984634 (Version 1)
Quarter: 2014Q1

REPORT INFORMATION
  Report Type: Spontaneous
  Country: US (occurrence: US)
  Receive Date: 20140307
  Receipt Date: 20140307
  Transmission Date: 20141002
  Serious: No
  Sender: FDA-Public Use
  Company Number: US-GLAXOSMITHKLINE-A1053414A

PATIENT
  Age: 72 Year
  Sex: Male

DRUGS (9)
  1. BREO ELLIPTA [Suspect]
     Indication: CHRONIC OBSTRUCTIVE PULMONARY DISEASE
     Dosage: 1PUFF PER DAY
     Route: 055
     Dates: start: 20131115
  2. LEVOFLOXACIN [Suspect]
     Indication: OROPHARYNGEAL PAIN
     Dosage: 500MG PER DAY
     Dates: start: 201312
  3. BUDESONIDE [Concomitant]
  4. IPRATROPIUM [Concomitant]
  5. LEVALBUTEROL [Concomitant]
  6. RAMIPRIL [Concomitant]
  7. AMLODIPINE BESYLATE [Concomitant]
  8. VITAMIN D [Concomitant]
  9. OXYGEN [Concomitant]

REACTIONS (3)
  - Oropharyngeal pain [Recovered/Resolved]
  - Dyspnoea [Unknown]
  - Heart rate increased [Unknown]
